FAERS Safety Report 5828847-5 (Version None)
Quarter: 2008Q3

REPORT INFORMATION
  Report Type: 
  Country: None (occurrence: None)
  Receive Date: 20080731
  Receipt Date: 20080721
  Transmission Date: 20090109
  Serious: Yes (Hospitalization, Other)
  Sender: FDA-Public Use
  Company Number: US-JNJFOC-20080306466

PATIENT
  Sex: Female
  Weight: 88.1 kg

DRUGS (4)
  1. REMICADE [Suspect]
     Indication: CROHN'S DISEASE
     Dosage: 2 INFUSIONS ON UNSPECIFIED DATES
     Route: 042
  2. IMURAN [Concomitant]
     Indication: CROHN'S DISEASE
  3. ASACOL [Concomitant]
     Indication: CROHN'S DISEASE
     Route: 048
  4. BENTYL [Concomitant]
     Indication: CROHN'S DISEASE
     Route: 048

REACTIONS (2)
  - OPEN WOUND [None]
  - SEPSIS [None]
